APPROVED DRUG PRODUCT: MORPHINE SULFATE
Active Ingredient: MORPHINE SULFATE
Strength: 15MG/ML **Federal Register determination that product was not discontinued or withdrawn for safety or effectiveness reasons**
Dosage Form/Route: INJECTABLE;INJECTION
Application: N202515 | Product #005
Applicant: HOSPIRA INC
Approved: Nov 14, 2011 | RLD: Yes | RS: No | Type: DISCN